FAERS Safety Report 11038615 (Version 4)
Quarter: 2015Q2

REPORT INFORMATION
  Report Type: Spontaneous
  Country: JP (occurrence: JP)
  Receive Date: 20150416
  Receipt Date: 20150522
  Transmission Date: 20150821
  Serious: Yes (Hospitalization, Other)
  Sender: FDA-Public Use
  Company Number: JP-GLAXOSMITHKLINE-JP2015JPN041278

PATIENT
  Age: 81 Year
  Sex: Female
  Weight: 56 kg

DRUGS (14)
  1. LAMICTAL [Suspect]
     Active Substance: LAMOTRIGINE
     Indication: EPILEPSY
     Dosage: 25 MG, 1D
     Route: 048
  2. LAMICTAL [Suspect]
     Active Substance: LAMOTRIGINE
     Dosage: 75 MG, 1D
     Route: 048
  3. LAMICTAL [Suspect]
     Active Substance: LAMOTRIGINE
     Dosage: 100 MG, BID
     Route: 048
     Dates: start: 20150204, end: 20150314
  4. LAMICTAL [Suspect]
     Active Substance: LAMOTRIGINE
     Indication: CONVULSION PROPHYLAXIS
     Dosage: 50 MG, 1D
     Route: 048
  5. TEMODAL [Suspect]
     Active Substance: TEMOZOLOMIDE
     Dosage: 113 MG, 1D
     Route: 041
     Dates: start: 20150311, end: 20150316
  6. LEVOFLOXACIN. [Concomitant]
     Active Substance: LEVOFLOXACIN
     Dosage: 500 MG, 1D
     Dates: start: 20150228, end: 20150305
  7. PURSENNID [Concomitant]
     Active Substance: SENNOSIDES A AND B
     Dosage: 24 MG, 1D
     Dates: end: 20150317
  8. VOGLIBOSE [Concomitant]
     Active Substance: VOGLIBOSE
     Dosage: 0.9 MG, 1D
     Dates: end: 20150317
  9. SEROTONE [Suspect]
     Active Substance: AZASETRON HYDROCHLORIDE
     Indication: VOMITING
     Dosage: 10 MG, 1D
     Route: 041
     Dates: start: 20150311, end: 20150316
  10. ACTOS [Concomitant]
     Active Substance: PIOGLITAZONE HYDROCHLORIDE
     Dosage: 15 MG, QD
     Dates: end: 20150317
  11. INSULIN [Concomitant]
     Active Substance: INSULIN NOS
     Dosage: UNK
     Dates: start: 20150318
  12. FOSPHENYTOIN [Concomitant]
     Active Substance: FOSPHENYTOIN\FOSPHENYTOIN SODIUM
     Indication: EPILEPSY
     Dosage: 750 MG, QD
     Dates: start: 20150214, end: 20150220
  13. MAGLAX [Concomitant]
     Active Substance: MAGNESIUM OXIDE
     Dosage: 2 DF, TID
     Dates: end: 20150317
  14. BASEN [Concomitant]
     Active Substance: VOGLIBOSE
     Dosage: 0.1 MG, TID

REACTIONS (24)
  - Skin exfoliation [Unknown]
  - Ocular hyperaemia [Unknown]
  - Urinary tract infection [Recovered/Resolved]
  - Drug eruption [Unknown]
  - Epidermal necrosis [Unknown]
  - Liver disorder [Unknown]
  - Nikolsky^s sign [Unknown]
  - Scab [Unknown]
  - Toxic epidermal necrolysis [Recovered/Resolved]
  - Tongue disorder [Unknown]
  - Blister [Unknown]
  - Skin erosion [Unknown]
  - Incorrect dose administered [Unknown]
  - Skin degenerative disorder [Unknown]
  - Stevens-Johnson syndrome [Unknown]
  - Enanthema [Unknown]
  - Rash pustular [Unknown]
  - Lip erosion [Unknown]
  - Eye discharge [Unknown]
  - Skin infection [Recovered/Resolved]
  - Erythema [Unknown]
  - Pyrexia [Unknown]
  - Erythema of eyelid [Unknown]
  - Rash [Unknown]

NARRATIVE: CASE EVENT DATE: 20150313
